FAERS Safety Report 10208873 (Version 1)
Quarter: 2014Q2

REPORT INFORMATION
  Report Type: Spontaneous
  Country: US (occurrence: US)
  Receive Date: 20140530
  Receipt Date: 20140530
  Transmission Date: 20141212
  Serious: Yes (Other)
  Sender: FDA-Public Use
  Company Number: US-ALEXION PHARMACEUTICALS INC.-A201401966

PATIENT
  Sex: 0

DRUGS (14)
  1. SOLIRIS 300MG [Suspect]
     Indication: TRANSPLANT REJECTION
     Dosage: 1 DF, QW
     Route: 042
  2. SOLIRIS 300MG [Suspect]
     Indication: OFF LABEL USE
  3. TACROLIMUS [Concomitant]
     Indication: TRANSPLANT REJECTION
     Route: 065
  4. CELLCEPT                           /01275102/ [Concomitant]
     Indication: TRANSPLANT REJECTION
     Route: 065
  5. IVIGLOB-EX [Concomitant]
     Indication: TRANSPLANT REJECTION
     Route: 065
  6. ATG                                /00575401/ [Concomitant]
     Indication: TRANSPLANT REJECTION
     Dosage: UNK
  7. BORTEZOMIB [Concomitant]
     Indication: TRANSPLANT REJECTION
     Dosage: UNK, Q4D
     Route: 065
  8. PREDNISONE [Concomitant]
     Indication: TRANSPLANT REJECTION
     Route: 065
  9. VANCOMYCIN [Concomitant]
     Indication: PROPHYLAXIS
     Route: 065
  10. IMIPENEM AND CILASTATIN [Concomitant]
     Indication: PROPHYLAXIS
     Dosage: UNK
     Route: 065
  11. CIPROFLOXACIN [Concomitant]
     Indication: PROPHYLAXIS
     Route: 065
  12. MICAFUNGIN [Concomitant]
     Indication: PROPHYLAXIS
     Route: 065
  13. VALGANCICLOVIR [Concomitant]
     Indication: PROPHYLAXIS
     Dosage: 900 MG, QD
     Route: 065
  14. SULFAMETHOXAZOLE AND TRIMETHOPRIM [Concomitant]
     Indication: PROPHYLAXIS
     Dosage: 1 DF, QD
     Route: 065

REACTIONS (1)
  - Serum sickness [Recovered/Resolved]
